FAERS Safety Report 13794768 (Version 10)
Quarter: 2021Q2

REPORT INFORMATION
  Report Type: Spontaneous
  Country: US (occurrence: US)
  Receive Date: 20170726
  Receipt Date: 20210407
  Transmission Date: 20210716
  Serious: No
  Sender: FDA-Public Use
  Company Number: PHEH2017US023083

PATIENT
  Sex: Female
  Weight: 81.64 kg

DRUGS (4)
  1. ONDANSETRON [Suspect]
     Active Substance: ONDANSETRON
     Indication: MORNING SICKNESS
     Dosage: 4 MG, PRN
     Route: 065
     Dates: start: 20131009, end: 20131101
  2. ONDANSETRON [Suspect]
     Active Substance: ONDANSETRON
     Indication: MORNING SICKNESS
     Dosage: 4 MG, PRN
     Route: 048
     Dates: start: 20131212, end: 20140301
  3. ONDANSETRON HYDROCHLORIDE. [Suspect]
     Active Substance: ONDANSETRON HYDROCHLORIDE
     Indication: MORNING SICKNESS
     Dosage: 4 MG, UNK
     Route: 042
     Dates: start: 20131129, end: 20131129
  4. ZOFRAN [Suspect]
     Active Substance: ONDANSETRON HYDROCHLORIDE
     Indication: PRODUCT USED FOR UNKNOWN INDICATION
     Route: 048

REACTIONS (10)
  - Maternal exposure during pregnancy [Unknown]
  - Fatigue [Unknown]
  - Constipation [Unknown]
  - Product use in unapproved indication [Unknown]
  - Dehydration [Unknown]
  - Emotional distress [Unknown]
  - Gastroenteritis [Unknown]
  - Product use issue [Unknown]
  - Injury [Unknown]
  - Urinary tract infection [Unknown]
